FAERS Safety Report 24765277 (Version 1)
Quarter: 2024Q4

REPORT INFORMATION
  Report Type: Report from Study
  Country: IE (occurrence: IE)
  Receive Date: 20241223
  Receipt Date: 20241223
  Transmission Date: 20250115
  Serious: No
  Sender: TAKEDA
  Company Number: IE-TAKEDA-2024TUS125786

PATIENT
  Age: 31 Year
  Sex: Female

DRUGS (3)
  1. HUMAN IMMUNOGLOBULIN G\HYALURONIDASE RECOMBINANT HUMAN [Suspect]
     Active Substance: HUMAN IMMUNOGLOBULIN G\HYALURONIDASE (HUMAN RECOMBINANT)
     Indication: Immunodeficiency common variable
     Dosage: 30 GRAM, Q3WEEKS
     Dates: start: 20200422
  2. MOVICOL [Concomitant]
     Active Substance: POLYETHYLENE GLYCOL 3350\POTASSIUM CHLORIDE\SODIUM BICARBONATE\SODIUM CHLORIDE
     Dosage: UNK UNK, QD
  3. MARVIOL [Concomitant]
     Dosage: UNK, QD

REACTIONS (3)
  - No adverse event [Unknown]
  - Device occlusion [Recovered/Resolved]
  - Device infusion issue [Recovered/Resolved]

NARRATIVE: CASE EVENT DATE: 20241212
